FAERS Safety Report 15859888 (Version 1)
Quarter: 2019Q1

REPORT INFORMATION
  Report Type: Report from Study
  Country: US (occurrence: US)
  Receive Date: 20190123
  Receipt Date: 20190123
  Transmission Date: 20190417
  Serious: Yes (Hospitalization)
  Sender: FDA-Public Use
  Company Number: US-ACTELION-A-US2016-136791

PATIENT
  Age: 78 Year
  Sex: Female
  Weight: 84.81 kg

DRUGS (1)
  1. TRACLEER [Suspect]
     Active Substance: BOSENTAN
     Indication: PULMONARY ARTERIAL HYPERTENSION
     Dosage: 125 MG, BID
     Route: 048
     Dates: start: 20120605

REACTIONS (3)
  - Hospitalisation [Unknown]
  - Blood potassium decreased [Unknown]
  - Pain in extremity [Unknown]
